FAERS Safety Report 25764321 (Version 1)
Quarter: 2025Q3

REPORT INFORMATION
  Report Type: Spontaneous
  Country: US (occurrence: US)
  Receive Date: 20250905
  Receipt Date: 20250905
  Transmission Date: 20251021
  Serious: No
  Sender: DOMPE FARMACEUTICI
  Company Number: US-FARMAPROD-202412-4242

PATIENT
  Sex: Female
  Weight: 78.93 kg

DRUGS (23)
  1. OXERVATE [Suspect]
     Active Substance: CENEGERMIN-BKBJ
     Indication: Neurotrophic keratopathy
     Route: 047
     Dates: start: 20241125
  2. CALCIUM 600-VIT D3 [Concomitant]
  3. DORZOLAMIDE AND TIMOLOL [Concomitant]
     Active Substance: DORZOLAMIDE HYDROCHLORIDE\TIMOLOL MALEATE
  4. ATORVASTATIN CALCIUM [Concomitant]
     Active Substance: ATORVASTATIN CALCIUM
  5. LISINOPRIL [Concomitant]
     Active Substance: LISINOPRIL
  6. PREDNISOLONE ACETATE [Concomitant]
     Active Substance: PREDNISOLONE ACETATE
  7. GABAPENTIN [Concomitant]
     Active Substance: GABAPENTIN
  8. MYRBETRIQ [Concomitant]
     Active Substance: MIRABEGRON
  9. DICLOFENAC SODIUM [Concomitant]
     Active Substance: DICLOFENAC SODIUM
  10. IBUPROFEN [Concomitant]
     Active Substance: IBUPROFEN
  11. FLUTICASONE PROPIONATE [Concomitant]
     Active Substance: FLUTICASONE PROPIONATE
  12. ACID REDUCER [Concomitant]
  13. BRIMONIDINE TARTRATE [Concomitant]
     Active Substance: BRIMONIDINE TARTRATE
  14. LATANOPROST [Concomitant]
     Active Substance: LATANOPROST
  15. FLUOXETINE HYDROCHLORIDE [Concomitant]
     Active Substance: FLUOXETINE HYDROCHLORIDE
  16. ERYTHROMYCIN [Concomitant]
     Active Substance: ERYTHROMYCIN
  17. GEMTESA [Concomitant]
     Active Substance: VIBEGRON
  18. FOSAMAX [Concomitant]
     Active Substance: ALENDRONATE SODIUM
  19. LIPITOR [Concomitant]
     Active Substance: ATORVASTATIN CALCIUM
  20. MULTIVITAMIN-MINERAL [Concomitant]
  21. CRANBERRY [Concomitant]
     Active Substance: CRANBERRY
  22. MOXIFLOXACIN [Concomitant]
     Active Substance: MOXIFLOXACIN
  23. PREDNISOLONE [Concomitant]
     Active Substance: PREDNISOLONE

REACTIONS (1)
  - Eye irritation [Recovered/Resolved]
